FAERS Safety Report 4565612-3 (Version None)
Quarter: 2005Q1

REPORT INFORMATION
  Report Type: 
  Country: None (occurrence: None)
  Receive Date: 20050126
  Receipt Date: 20050110
  Transmission Date: 20050727
  Serious: Yes (Hospitalization)
  Sender: FDA-Public Use
  Company Number: USA031050866

PATIENT
  Age: 73 Year
  Sex: Male
  Weight: 110 kg

DRUGS (3)
  1. HUMALOG [Suspect]
     Indication: DIABETES MELLITUS
     Dosage: 40 U/DAY
  2. HUMALOG [Suspect]
     Indication: DIABETES MELLITUS
     Dosage: 40 U/DAY
  3. HUMULIN N [Suspect]
     Indication: DIABETES MELLITUS
     Dosage: 50 U/DAY

REACTIONS (5)
  - BLOOD GLUCOSE INCREASED [None]
  - INJECTION SITE HAEMORRHAGE [None]
  - INJECTION SITE INDURATION [None]
  - MEDICAL DEVICE COMPLICATION [None]
  - MEDICATION ERROR [None]
